FAERS Safety Report 17012389 (Version 3)
Quarter: 2020Q1

REPORT INFORMATION
  Report Type: Spontaneous
  Country: US (occurrence: US)
  Receive Date: 20191108
  Receipt Date: 20200113
  Transmission Date: 20200409
  Serious: No
  Sender: FDA-Public Use
  Company Number: US-ACTELION-A-US2019-191682

PATIENT
  Age: 55 Year
  Sex: Female
  Weight: 78.46 kg

DRUGS (4)
  1. WARFARIN [Concomitant]
     Active Substance: WARFARIN
  2. TRACLEER [Interacting]
     Active Substance: BOSENTAN
     Dosage: 62.5 MG, BID
     Route: 048
     Dates: start: 20190314
  3. DILTIAZEM. [Concomitant]
     Active Substance: DILTIAZEM
  4. TRACLEER [Suspect]
     Active Substance: BOSENTAN
     Indication: PULMONARY ARTERIAL HYPERTENSION
     Dosage: 62.5 MG, BID
     Route: 048
     Dates: start: 20190531

REACTIONS (10)
  - Adverse event [Unknown]
  - Vomiting [Unknown]
  - Sinusitis [Unknown]
  - Peripheral swelling [Unknown]
  - Malaise [Unknown]
  - Dizziness [Unknown]
  - Rash macular [Unknown]
  - Dyspnoea [Unknown]
  - Drug interaction [Unknown]
  - Nausea [Unknown]

NARRATIVE: CASE EVENT DATE: 20190531
